FAERS Safety Report 13678237 (Version 1)
Quarter: 2017Q2

REPORT INFORMATION
  Report Type: Spontaneous
  Country: US (occurrence: US)
  Receive Date: 20170621
  Receipt Date: 20170621
  Transmission Date: 20170830
  Serious: Yes (Hospitalization)
  Sender: FDA-Public Use
  Company Number: None

PATIENT
  Age: 11 Year
  Sex: Male
  Weight: 23.59 kg

DRUGS (9)
  1. ZOLINZA [Suspect]
     Active Substance: VORINOSTAT
     Route: 048
     Dates: start: 20161114, end: 20170620
  2. GABAPENTIN. [Concomitant]
     Active Substance: GABAPENTIN
  3. FAMOTIDINE. [Concomitant]
     Active Substance: FAMOTIDINE
  4. SIMVASTATIN. [Concomitant]
     Active Substance: SIMVASTATIN
  5. CYMBALTA [Concomitant]
     Active Substance: DULOXETINE HYDROCHLORIDE
  6. SEROQUEL [Concomitant]
     Active Substance: QUETIAPINE FUMARATE
  7. KEPPRA [Concomitant]
     Active Substance: LEVETIRACETAM
  8. HYDROXYZINE [Concomitant]
     Active Substance: HYDROXYZINE HYDROCHLORIDE
  9. AMLODIPINE [Concomitant]
     Active Substance: AMLODIPINE BESYLATE

REACTIONS (1)
  - Disease progression [None]

NARRATIVE: CASE EVENT DATE: 20170620
